FAERS Safety Report 24190297 (Version 1)
Quarter: 2024Q3

REPORT INFORMATION
  Report Type: Spontaneous
  Country: IT (occurrence: IT)
  Receive Date: 20240808
  Receipt Date: 20240808
  Transmission Date: 20241017
  Serious: Yes (Other)
  Sender: RANBAXY
  Company Number: IT-SUN PHARMACEUTICAL INDUSTRIES LTD-2024RR-461560

PATIENT
  Sex: Male

DRUGS (3)
  1. ODOMZO [Suspect]
     Active Substance: SONIDEGIB
     Indication: Basal cell carcinoma
     Dosage: 200 MILLIGRAM
     Route: 065
     Dates: start: 20240409
  2. UMECLIDINIUM BROMIDE [Concomitant]
     Active Substance: UMECLIDINIUM BROMIDE
     Indication: Dyspnoea
     Dosage: DUST DISPENSER TO BE VACUUMED 55 MICROGRAMS ONCE A DAY
  3. PANTOPRAZOLE SODIUM [Concomitant]
     Active Substance: PANTOPRAZOLE SODIUM
     Indication: Gastric pH decreased
     Dosage: 2 TABLETS PER DAY
     Route: 065

REACTIONS (2)
  - Positive dose response relationship [Recovered/Resolved with Sequelae]
  - Therapy responder [Recovered/Resolved with Sequelae]

NARRATIVE: CASE EVENT DATE: 20240603
